FAERS Safety Report 24284596 (Version 1)
Quarter: 2024Q3

REPORT INFORMATION
  Report Type: Spontaneous
  Country: US (occurrence: US)
  Receive Date: 20240905
  Receipt Date: 20240905
  Transmission Date: 20241016
  Serious: No
  Sender: AMGEN
  Company Number: US-AMGEN-USASP2024176056

PATIENT
  Sex: Male

DRUGS (2)
  1. RAVICTI [Suspect]
     Active Substance: GLYCEROL PHENYLBUTYRATE
     Indication: Argininosuccinate synthetase deficiency
     Dosage: 0.7 MILLILITER, TID, WITH MEALS. (TOTAL DAILY DOSE IS 2.1 ML)
     Route: 048
  2. ARGININE [Concomitant]
     Active Substance: ARGININE
     Dosage: 500 MILLIGRAM
     Route: 065

REACTIONS (2)
  - COVID-19 [Unknown]
  - Weight decreased [Unknown]
